FAERS Safety Report 11948843 (Version 1)
Quarter: 2016Q1

REPORT INFORMATION
  Report Type: Spontaneous
  Country: RU (occurrence: RU)
  Receive Date: 20160125
  Receipt Date: 20160125
  Transmission Date: 20160526
  Serious: Yes (Other)
  Sender: FDA-Public Use
  Company Number: RU-JNJFOC-20160117341

PATIENT
  Sex: Female

DRUGS (3)
  1. PREZISTA [Suspect]
     Active Substance: DARUNAVIR ETHANOLATE
     Indication: HIV INFECTION
     Route: 048
  2. NIKAVIR [Concomitant]
     Active Substance: PHOSPHAZIDE
     Route: 065
  3. LAMIVUDINE. [Concomitant]
     Active Substance: LAMIVUDINE
     Route: 065

REACTIONS (2)
  - Rash [Unknown]
  - Haemoglobin increased [Unknown]
